FAERS Safety Report 23290521 (Version 1)
Quarter: 2023Q4

REPORT INFORMATION
  Report Type: Report from Study
  Country: US (occurrence: US)
  Receive Date: 20231213
  Receipt Date: 20231213
  Transmission Date: 20240110
  Serious: Yes (Other)
  Sender: FDA-Public Use
  Company Number: US-JAZZ PHARMACEUTICALS-2023-US-024442

PATIENT
  Sex: Male

DRUGS (6)
  1. XYREM [Suspect]
     Active Substance: SODIUM OXYBATE
     Indication: Narcolepsy
  2. XYREM [Suspect]
     Active Substance: SODIUM OXYBATE
     Indication: Cataplexy
  3. XYREM [Suspect]
     Active Substance: SODIUM OXYBATE
     Indication: Somnolence
  4. TRIAZOLAM [Concomitant]
     Active Substance: TRIAZOLAM
     Dosage: 0000
     Dates: start: 20140922
  5. PROMETHAZINE [Concomitant]
     Active Substance: PROMETHAZINE HYDROCHLORIDE
     Dosage: 0000
     Dates: start: 20140922
  6. ACETAMINOPHEN\HYDROCODONE [Concomitant]
     Active Substance: ACETAMINOPHEN\HYDROCODONE
     Dosage: 0000
     Dates: start: 20140922

REACTIONS (11)
  - Erectile dysfunction [Unknown]
  - Pain [Unknown]
  - Inflammation [Unknown]
  - Folate deficiency [Unknown]
  - Nasal congestion [Unknown]
  - Migraine [Unknown]
  - Depression [Unknown]
  - Anxiety [Unknown]
  - Gastrooesophageal reflux disease [Unknown]
  - Headache [Unknown]
  - Blood cholesterol abnormal [Unknown]
